FAERS Safety Report 12717744 (Version 2)
Quarter: 2017Q4

REPORT INFORMATION
  Report Type: Spontaneous
  Country: GB (occurrence: GB)
  Receive Date: 20160906
  Receipt Date: 20171101
  Transmission Date: 20180320
  Serious: Yes (Life-Threatening)
  Sender: FDA-Public Use
  Company Number: GB-BAYER-2016-170395

PATIENT
  Age: 88 Year
  Sex: Male

DRUGS (7)
  1. ENOXAPARIN [Concomitant]
     Active Substance: ENOXAPARIN
     Dosage: 20 MG, QD
     Route: 058
  2. RANITIDINE. [Concomitant]
     Active Substance: RANITIDINE
     Dosage: 50 MG, BID
     Route: 040
  3. HYDROCORTISONE. [Concomitant]
     Active Substance: HYDROCORTISONE
     Dosage: 100 MG, QID
     Route: 041
  4. LACTULOSE. [Concomitant]
     Active Substance: LACTULOSE
     Dosage: 30 ML, BID
     Route: 048
  5. CIPROFLOXACIN. [Suspect]
     Active Substance: CIPROFLOXACIN
     Indication: BILIARY DILATATION
     Dosage: 400 MG, BID
     Route: 040
     Dates: start: 20160809, end: 20160813
  6. FUCITHALMIC [Concomitant]
     Active Substance: FUSIDIC ACID
     Dosage: 1 GTT, BID
     Route: 061
  7. METRONIDAZOLE. [Concomitant]
     Active Substance: METRONIDAZOLE
     Indication: BILIARY DILATATION
     Dosage: 500 MG, TID
     Route: 040

REACTIONS (5)
  - Hepatotoxicity [Not Recovered/Not Resolved]
  - Condition aggravated [Unknown]
  - Confusional state [Unknown]
  - Malaise [Unknown]
  - Jaundice [Unknown]

NARRATIVE: CASE EVENT DATE: 20160811
